FAERS Safety Report 14191142 (Version 1)
Quarter: 2017Q4

REPORT INFORMATION
  Report Type: Spontaneous
  Country: US (occurrence: US)
  Receive Date: 20171115
  Receipt Date: 20171115
  Transmission Date: 20180321
  Serious: No
  Sender: FDA-Public Use
  Company Number: US-PFIZER INC-2017491822

PATIENT
  Age: 59 Year
  Sex: Female
  Weight: 46 kg

DRUGS (1)
  1. SKELAXIN [Suspect]
     Active Substance: METAXALONE
     Indication: MYALGIA
     Dosage: 800 MG, 3X/DAY
     Route: 048
     Dates: start: 201707

REACTIONS (4)
  - Back pain [Not Recovered/Not Resolved]
  - Condition aggravated [Not Recovered/Not Resolved]
  - Muscle spasms [Not Recovered/Not Resolved]
  - Nasopharyngitis [Unknown]

NARRATIVE: CASE EVENT DATE: 201710
